FAERS Safety Report 5288655-3 (Version None)
Quarter: 2007Q2

REPORT INFORMATION
  Report Type: 
  Country: None (occurrence: None)
  Receive Date: 20070405
  Receipt Date: 20070329
  Transmission Date: 20071010
  Serious: Yes (Other)
  Sender: FDA-Public Use
  Company Number: JP-ROCHE-485870

PATIENT
  Age: 64 Year
  Sex: Male
  Weight: 53 kg

DRUGS (11)
  1. TAMIFLU [Suspect]
     Indication: INFLUENZA
     Route: 048
     Dates: start: 20060217, end: 20060217
  2. TAMIFLU [Suspect]
     Route: 048
     Dates: start: 20060218, end: 20060219
  3. TRYPTANOL [Concomitant]
     Route: 048
  4. ALLOPURINOL [Concomitant]
     Route: 048
  5. PRECIPITATED CALCIUM CARBONATE [Concomitant]
     Route: 048
  6. ASPIRIN [Concomitant]
     Route: 048
  7. OMEPRAL [Concomitant]
     Route: 048
  8. RENIVACE [Concomitant]
     Route: 048
  9. AMLODIN [Concomitant]
     Route: 048
  10. ALFAROL [Concomitant]
     Route: 048
  11. CALCIUM POLYSTYRENE SULFONATE [Concomitant]
     Route: 048

REACTIONS (2)
  - MENTAL STATUS CHANGES [None]
  - PSYCHIATRIC SYMPTOM [None]
